FAERS Safety Report 11829687 (Version 3)
Quarter: 2016Q1

REPORT INFORMATION
  Report Type: Spontaneous
  Country: JP (occurrence: JP)
  Receive Date: 20151212
  Receipt Date: 20160122
  Transmission Date: 20160525
  Serious: Yes (Hospitalization)
  Sender: FDA-Public Use
  Company Number: JP-ASTRAZENECA-2015SF21659

PATIENT
  Age: 80 Year
  Sex: Male
  Weight: 60 kg

DRUGS (11)
  1. ONGLYZA [Suspect]
     Active Substance: SAXAGLIPTIN HYDROCHLORIDE
     Indication: DIABETES MELLITUS
     Route: 048
     Dates: start: 20140228
  2. BUFFERIN [Suspect]
     Active Substance: ASPIRIN
     Indication: LACUNAR INFARCTION
     Route: 048
     Dates: start: 20071106, end: 20141030
  3. NORVASC [Suspect]
     Active Substance: AMLODIPINE BESYLATE
     Indication: HYPERTENSION
     Route: 048
     Dates: start: 20040322
  4. URSO [Suspect]
     Active Substance: URSODIOL
     Indication: CHOLELITHIASIS
     Route: 048
     Dates: start: 20090407
  5. MUCOSOLVAN L [Suspect]
     Active Substance: AMBROXOL HYDROCHLORIDE
     Indication: BRONCHITIS CHRONIC
     Route: 048
     Dates: start: 20040322
  6. NITOROL R [Suspect]
     Active Substance: ISOSORBIDE DINITRATE
     Indication: ANGINA PECTORIS
     Route: 048
     Dates: start: 20040322
  7. NU-LOTAN [Suspect]
     Active Substance: LOSARTAN POTASSIUM
     Indication: HYPERTENSION
     Route: 048
     Dates: start: 20060701
  8. PARIET [Suspect]
     Active Substance: RABEPRAZOLE SODIUM
     Indication: PROPHYLAXIS AGAINST GASTROINTESTINAL ULCER
     Route: 048
     Dates: start: 20121009
  9. SUREPOST [Concomitant]
     Active Substance: REPAGLINIDE
     Indication: DIABETES MELLITUS
     Route: 048
     Dates: start: 20140317
  10. LUNESTA [Suspect]
     Active Substance: ESZOPICLONE
     Indication: INSOMNIA
     Route: 048
     Dates: start: 20130820
  11. TRICOR [Suspect]
     Active Substance: FENOFIBRATE
     Indication: DYSLIPIDAEMIA
     Route: 048
     Dates: start: 20050620

REACTIONS (1)
  - Cerebral infarction [Recovered/Resolved]
